FAERS Safety Report 22659306 (Version 1)
Quarter: 2023Q2

REPORT INFORMATION
  Report Type: Spontaneous
  Country: FR (occurrence: FR)
  Receive Date: 20230630
  Receipt Date: 20230630
  Transmission Date: 20230721
  Serious: Yes (Other)
  Sender: FDA-Public Use
  Company Number: None

PATIENT
  Age: 33 Year
  Sex: Female

DRUGS (4)
  1. QUETIAPINE [Interacting]
     Active Substance: QUETIAPINE
     Indication: Bipolar II disorder
     Dosage: 400 MILLIGRAM, BID (400MG 1 TAB MOR,1 TAB EVE)
     Route: 048
     Dates: start: 202211
  2. PYRIDOXINE HYDROCHLORIDE\THIAMINE HYDROCHLORIDE [Interacting]
     Active Substance: PYRIDOXINE HYDROCHLORIDE\THIAMINE HYDROCHLORIDE
     Indication: Dyskinesia
     Dosage: 500MG/D
     Route: 048
     Dates: start: 2017
  3. PYRIDOXINE HYDROCHLORIDE\THIAMINE HYDROCHLORIDE [Interacting]
     Active Substance: PYRIDOXINE HYDROCHLORIDE\THIAMINE HYDROCHLORIDE
     Dosage: 500 MILLIGRAM
     Route: 048
     Dates: start: 20230309, end: 20230512
  4. CYAMEMAZINE [Interacting]
     Active Substance: CYAMEMAZINE
     Indication: Bipolar II disorder
     Dosage: 700 MG, QD (3 TAB MOR, 3 TAB NOON, 1 TAB BEDTIME)
     Route: 048
     Dates: start: 2010

REACTIONS (2)
  - Bipolar II disorder [Recovered/Resolved]
  - Drug interaction [Recovered/Resolved]
